FAERS Safety Report 8771626 (Version 4)
Quarter: 2012Q4

REPORT INFORMATION
  Report Type: 
  Country: US (occurrence: US)
  Receive Date: 20120905
  Receipt Date: 20121023
  Transmission Date: 20130627
  Serious: No
  Sender: FDA-Public Use
  Company Number: US-ASTRAZENECA-2012SE57663

PATIENT
  Age: 74 Year
  Sex: Female
  Weight: 79.4 kg

DRUGS (8)
  1. NEXIUM [Suspect]
     Indication: GASTROOESOPHAGEAL REFLUX DISEASE
     Route: 048
     Dates: start: 2009
  2. PRILOSEC [Suspect]
     Indication: GASTROOESOPHAGEAL REFLUX DISEASE
     Route: 048
  3. DILAUDID [Suspect]
     Indication: PAIN
     Route: 065
  4. NEURONTIN [Concomitant]
     Indication: PAIN
  5. VITAMIN D [Concomitant]
  6. FISH OIL [Concomitant]
  7. PATANASE [Concomitant]
     Indication: MULTIPLE ALLERGIES
  8. LIDOCAINE [Concomitant]
     Indication: PAIN

REACTIONS (16)
  - Muscle spasms [Not Recovered/Not Resolved]
  - Decreased appetite [Unknown]
  - Weight increased [Not Recovered/Not Resolved]
  - Gastrooesophageal reflux disease [Unknown]
  - Dysphonia [Unknown]
  - Throat irritation [Not Recovered/Not Resolved]
  - Gastric disorder [Unknown]
  - Meniscus injury [Unknown]
  - Dyspnoea [Unknown]
  - Thyroid disorder [Unknown]
  - Retching [Not Recovered/Not Resolved]
  - Nausea [Unknown]
  - Drug ineffective [Not Recovered/Not Resolved]
  - Headache [Unknown]
  - Nausea [Unknown]
  - Pain [Unknown]
